FAERS Safety Report 9638635 (Version 1)
Quarter: 2013Q4

REPORT INFORMATION
  Report Type: Spontaneous
  Country: US (occurrence: US)
  Receive Date: 20131022
  Receipt Date: 20131022
  Transmission Date: 20140711
  Serious: No
  Sender: FDA-Public Use
  Company Number: US-BRISTOL-MYERS SQUIBB COMPANY-19414374

PATIENT
  Age: 79 Year
  Sex: Female
  Weight: 58.96 kg

DRUGS (4)
  1. ELIQUIS [Suspect]
     Indication: ATRIAL FIBRILLATION
     Dates: start: 20130914
  2. AMLODIPINE [Concomitant]
  3. SOTALOL [Concomitant]
  4. CLONAZEPAM [Concomitant]

REACTIONS (5)
  - Dyspnoea [Unknown]
  - Urinary tract infection [Unknown]
  - Throat tightness [Unknown]
  - Dysphagia [Unknown]
  - Constipation [Unknown]
